FAERS Safety Report 24826129 (Version 1)
Quarter: 2025Q1

REPORT INFORMATION
  Report Type: Spontaneous
  Country: GB (occurrence: GB)
  Receive Date: 20250109
  Receipt Date: 20250109
  Transmission Date: 20250409
  Serious: Yes (Other)
  Sender: TEVA
  Company Number: GB-MHRA-TPP42445106C12480854YC1735824854885

PATIENT
  Sex: Female
  Weight: 35 kg

DRUGS (6)
  1. MONTELUKAST [Suspect]
     Active Substance: MONTELUKAST
     Indication: Ill-defined disorder
     Route: 065
     Dates: start: 20250102
  2. ALBUTEROL [Concomitant]
     Active Substance: ALBUTEROL
     Indication: Ill-defined disorder
     Route: 065
     Dates: start: 20240110
  3. PREDNISOLONE [Concomitant]
     Active Substance: PREDNISOLONE
     Indication: Ill-defined disorder
     Dosage: TAKE SIX TABLETS AS A SINGLE DOSE ONCE DAILY IN...
     Route: 065
     Dates: start: 20241106, end: 20241109
  4. SERETIDE [Concomitant]
     Active Substance: FLUTICASONE PROPIONATE\SALMETEROL XINAFOATE
     Indication: Ill-defined disorder
     Dosage: INHALE 2 DOSES TWICE DAILY
     Route: 065
     Dates: start: 20240103
  5. POLYETHYLENE GLYCOL 3350\POTASSIUM CHLORIDE\SODIUM BICARBONATE\SODIUM [Concomitant]
     Active Substance: POLYETHYLENE GLYCOL 3350\POTASSIUM CHLORIDE\SODIUM BICARBONATE\SODIUM CHLORIDE
     Indication: Ill-defined disorder
     Route: 065
     Dates: start: 20230109
  6. MONTELUKAST [Concomitant]
     Active Substance: MONTELUKAST
     Indication: Ill-defined disorder
     Dosage: TAKE ONE AT NIGHT
     Route: 065
     Dates: start: 20241122, end: 20241220

REACTIONS (1)
  - Psychomotor hyperactivity [Recovered/Resolved]

NARRATIVE: CASE EVENT DATE: 20250102
